FAERS Safety Report 4901655-5 (Version None)
Quarter: 2006Q1

REPORT INFORMATION
  Report Type: 
  Country: None (occurrence: None)
  Receive Date: 20060206
  Receipt Date: 20050909
  Transmission Date: 20060701
  Serious: Yes (Other)
  Sender: FDA-Public Use
  Company Number: US-BRISTOL-MYERS SQUIBB COMPANY-13106372

PATIENT
  Age: 52 Year
  Sex: Female
  Weight: 50 kg

DRUGS (3)
  1. TAXOL [Suspect]
     Indication: NEOPLASM MALIGNANT
     Dates: start: 20050315
  2. CARBOPLATIN [Suspect]
     Indication: NEOPLASM MALIGNANT
     Dates: start: 20050315
  3. PROCRIT [Suspect]
     Indication: ANAEMIA OF MALIGNANT DISEASE
     Dosage: DOSE UNIT = IU
     Route: 058
     Dates: start: 20050331, end: 20050421

REACTIONS (1)
  - HAEMOGLOBIN DECREASED [None]
